FAERS Safety Report 6794140-X (Version None)
Quarter: 2010Q2

REPORT INFORMATION
  Report Type: 
  Country: None (occurrence: None)
  Receive Date: 20100624
  Receipt Date: 20090911
  Transmission Date: 20101027
  Serious: Yes (Death, Other)
  Sender: FDA-Public Use
  Company Number: DE-PFIZER INC-2009245714

PATIENT
  Sex: Male

DRUGS (3)
  1. AMPICILLIN AND SULBACTAM [Suspect]
     Indication: PNEUMONIA PNEUMOCOCCAL
     Dosage: 1 DF = 2 G AMPICILLIN SODIUM/1 G SULBACTAM SODIUM
     Route: 042
     Dates: start: 20081007, end: 20081009
  2. ERYTHROMYCIN [Suspect]
     Dosage: 1 G, 2X/DAY
     Route: 042
     Dates: start: 20081007, end: 20081009
  3. METOPROLOL SUCCINATE [Concomitant]
     Dosage: 92 MG, 1X/DAY
     Route: 048
     Dates: start: 20081007, end: 20081009

REACTIONS (3)
  - COMPLETED SUICIDE [None]
  - HYPOKALAEMIA [None]
  - PSYCHOTIC DISORDER [None]
